FAERS Safety Report 6038059-0 (Version None)
Quarter: 2009Q1

REPORT INFORMATION
  Report Type: 
  Country: None (occurrence: None)
  Receive Date: 20090113
  Receipt Date: 20090113
  Transmission Date: 20090719
  Serious: Yes (Other)
  Sender: FDA-Public Use
  Company Number: None

PATIENT
  Age: 43 Year
  Sex: Female
  Weight: 96.6162 kg

DRUGS (1)
  1. CIPROFLOXACIN [Suspect]
     Indication: URINARY TRACT INFECTION
     Dosage: 1 TABLET BID PO ONE DOSE ONLY
     Route: 048

REACTIONS (3)
  - ARTHRALGIA [None]
  - DERMATITIS ALLERGIC [None]
  - JOINT SWELLING [None]
